FAERS Safety Report 12290390 (Version 1)
Quarter: 2016Q2

REPORT INFORMATION
  Report Type: Spontaneous
  Country: US (occurrence: US)
  Receive Date: 20160421
  Receipt Date: 20160421
  Transmission Date: 20160815
  Serious: No
  Sender: FDA-Public Use
  Company Number: US-MDT-ADR-2016-00723

PATIENT
  Age: 28 Year
  Sex: Female

DRUGS (1)
  1. BACLOFEN. [Suspect]
     Active Substance: BACLOFEN
     Dosage: 171.5 MCG/DAY
     Route: 037

REACTIONS (3)
  - Musculoskeletal stiffness [Unknown]
  - Pregnancy [Unknown]
  - Muscular weakness [Unknown]

NARRATIVE: CASE EVENT DATE: 201511
